FAERS Safety Report 9652731 (Version 2)
Quarter: 2013Q4

REPORT INFORMATION
  Report Type: Spontaneous
  Country: US (occurrence: US)
  Receive Date: 20131029
  Receipt Date: 20131226
  Transmission Date: 20140711
  Serious: Yes (Hospitalization)
  Sender: FDA-Public Use
  Company Number: US-BAYER-2013-130734

PATIENT
  Age: 34 Year
  Sex: Female
  Weight: 65.76 kg

DRUGS (5)
  1. YAZ [Suspect]
     Indication: PREMENSTRUAL DYSPHORIC DISORDER
     Dosage: UNK
     Dates: start: 20080422, end: 20080525
  2. YAZ [Suspect]
     Indication: ENDOMETRIOSIS
  3. TORADOL [Concomitant]
  4. IBUPROFEN [Concomitant]
     Indication: HEADACHE
     Dosage: UNK UNK, PRN
  5. MORPHINE [Concomitant]

REACTIONS (13)
  - Pulmonary embolism [Recovered/Resolved]
  - Atelectasis [Recovering/Resolving]
  - Pleural effusion [None]
  - Emotional distress [None]
  - Anxiety [None]
  - General physical health deterioration [Recovered/Resolved]
  - Pain [None]
  - Injury [Recovered/Resolved]
  - Anhedonia [None]
  - Back pain [Recovered/Resolved]
  - Dyspnoea [Recovered/Resolved]
  - Chest pain [Recovered/Resolved]
  - Malaise [Recovered/Resolved]
